FAERS Safety Report 10244582 (Version 1)
Quarter: 2014Q2

REPORT INFORMATION
  Report Type: Spontaneous
  Country: US (occurrence: US)
  Receive Date: 20140618
  Receipt Date: 20140618
  Transmission Date: 20141212
  Serious: Yes (Hospitalization)
  Sender: FDA-Public Use
  Company Number: US-GLAXOSMITHKLINE-A1076932A

PATIENT
  Age: 57 Year
  Sex: Female

DRUGS (3)
  1. ADVAIR [Suspect]
     Indication: CHRONIC OBSTRUCTIVE PULMONARY DISEASE
     Dosage: 1PUFF TWICE PER DAY
     Route: 055
     Dates: start: 2012
  2. NITROGLYCERIN [Concomitant]
  3. ALBUTEROL INHALER [Concomitant]

REACTIONS (3)
  - Angina pectoris [Unknown]
  - Coronary artery disease [Unknown]
  - Chest pain [Not Recovered/Not Resolved]
